FAERS Safety Report 17934516 (Version 1)
Quarter: 2020Q2

REPORT INFORMATION
  Report Type: Spontaneous
  Country: US (occurrence: US)
  Receive Date: 20200623
  Receipt Date: 20200623
  Transmission Date: 20200714
  Serious: Yes (Hospitalization)
  Sender: FDA-Public Use
  Company Number: None

PATIENT
  Age: 76 Year
  Sex: Female

DRUGS (4)
  1. LISINOPRIL. [Suspect]
     Active Substance: LISINOPRIL
  2. ATIVAN [Suspect]
     Active Substance: LORAZEPAM
  3. VERZENIO [Suspect]
     Active Substance: ABEMACICLIB
     Route: 048
     Dates: start: 20200506
  4. FASLODEX [Suspect]
     Active Substance: FULVESTRANT

REACTIONS (5)
  - Hypotension [None]
  - Diarrhoea [None]
  - Blood creatinine increased [None]
  - Blood urea increased [None]
  - Dehydration [None]

NARRATIVE: CASE EVENT DATE: 20200601
